FAERS Safety Report 6912629-7 (Version None)
Quarter: 2010Q3

REPORT INFORMATION
  Report Type: 
  Country: None (occurrence: None)
  Receive Date: 20100806
  Receipt Date: 20080815
  Transmission Date: 20110219
  Serious: No
  Sender: FDA-Public Use
  Company Number: US-PFIZER INC-2008068249

PATIENT
  Sex: Female
  Weight: 61.363 kg

DRUGS (9)
  1. DETROL LA [Suspect]
     Indication: POLLAKIURIA
     Route: 048
     Dates: start: 20080812
  2. CELEBREX [Concomitant]
  3. ANTIHYPERTENSIVES [Concomitant]
  4. TOPROL-XL [Concomitant]
  5. CLONIDINE [Concomitant]
  6. TRANDOLAPRIL [Concomitant]
  7. SKELAXIN [Concomitant]
  8. ZYRTEC [Concomitant]
  9. SENOKOT [Concomitant]

REACTIONS (1)
  - DYSURIA [None]
